FAERS Safety Report 10378256 (Version 2)
Quarter: 2014Q3

REPORT INFORMATION
  Report Type: Spontaneous
  Country: US (occurrence: US)
  Receive Date: 20140812
  Receipt Date: 20140911
  Transmission Date: 20150326
  Serious: No
  Sender: FDA-Public Use
  Company Number: US-PFIZER INC-2014221581

PATIENT
  Age: 75 Year
  Sex: Male
  Weight: 95.24 kg

DRUGS (5)
  1. HYDROCORTISON [Concomitant]
     Active Substance: HYDROCORTISONE
     Indication: ECZEMA
     Dosage: UNK
  2. LYRICA [Suspect]
     Active Substance: PREGABALIN
     Indication: TREMOR
     Dosage: 400 MG, DAILY
     Route: 048
     Dates: end: 2014
  3. LYRICA [Suspect]
     Active Substance: PREGABALIN
     Indication: TREMOR
     Dosage: 100 MG, 1X/DAY (ONCE HIS MORNING)
     Route: 048
     Dates: start: 2014
  4. CORTISONE [Concomitant]
     Active Substance: CORTISONE\HYDROCORTISONE
     Indication: ECZEMA
     Dosage: UNK
  5. CORTISONE [Concomitant]
     Active Substance: CORTISONE\HYDROCORTISONE
     Indication: ECZEMA
     Dosage: UNK

REACTIONS (7)
  - Drug ineffective [Unknown]
  - Fall [Unknown]
  - Balance disorder [Unknown]
  - Therapeutic response changed [Unknown]
  - Somnolence [Recovered/Resolved]
  - Pre-existing condition improved [Unknown]
  - Pruritus [Unknown]

NARRATIVE: CASE EVENT DATE: 2014
